FAERS Safety Report 5767814-7 (Version None)
Quarter: 2008Q2

REPORT INFORMATION
  Report Type: 
  Country: None (occurrence: None)
  Receive Date: 20080612
  Receipt Date: 20080602
  Transmission Date: 20081010
  Serious: Yes (Other)
  Sender: FDA-Public Use
  Company Number: PHEH2008US05078

PATIENT
  Sex: Male

DRUGS (2)
  1. NEORAL [Suspect]
  2. MYFORTIC [Suspect]

REACTIONS (1)
  - TACHYCARDIA [None]
